FAERS Safety Report 8167245-9 (Version None)
Quarter: 2012Q1

REPORT INFORMATION
  Report Type: 
  Country: None (occurrence: None)
  Receive Date: 20120227
  Receipt Date: 20120221
  Transmission Date: 20120608
  Serious: Yes (Death)
  Sender: FDA-Public Use
  Company Number: ZA-JNJFOC-20120211322

PATIENT
  Age: 37 Year
  Sex: Female

DRUGS (1)
  1. DORIPENEM [Suspect]
     Indication: PRODUCT USED FOR UNKNOWN INDICATION
     Dosage: 30 MINUTES BOLUS INFUSION
     Route: 041
     Dates: start: 20110403

REACTIONS (1)
  - PNEUMONIA KLEBSIELLA [None]
